FAERS Safety Report 13770139 (Version 1)
Quarter: 2017Q3

REPORT INFORMATION
  Report Type: Spontaneous
  Country: GB (occurrence: GB)
  Receive Date: 20170719
  Receipt Date: 20170719
  Transmission Date: 20171127
  Serious: Yes (Life-Threatening)
  Sender: FDA-Public Use
  Company Number: GB-PFIZER INC-764901

PATIENT
  Age: 70 Year
  Sex: Male

DRUGS (2)
  1. HUMIRA [Suspect]
     Active Substance: ADALIMUMAB
     Indication: PSORIASIS
     Dosage: 40 MG, FREQ: 2 WEEK; INTERVAL: 1
     Route: 058
     Dates: start: 20090401
  2. METHOTREXATE SODIUM. [Suspect]
     Active Substance: METHOTREXATE SODIUM
     Indication: PSORIASIS
     Dosage: 30 MG, FREQ: 1 WEEK; INTERVAL: 1
     Route: 048
     Dates: start: 20060101, end: 20100101

REACTIONS (3)
  - Large cell lung cancer [Not Recovered/Not Resolved]
  - Haemoglobin decreased [Unknown]
  - Metastasis [Not Recovered/Not Resolved]

NARRATIVE: CASE EVENT DATE: 20090903
